FAERS Safety Report 6263952-3 (Version None)
Quarter: 2009Q3

REPORT INFORMATION
  Report Type: 
  Country: None (occurrence: None)
  Receive Date: 20090710
  Receipt Date: 20090701
  Transmission Date: 20100115
  Serious: Yes (Life-Threatening, Hospitalization)
  Sender: FDA-Public Use
  Company Number: ZA-ABBOTT-09P-143-0583293-00

PATIENT
  Sex: Female
  Weight: 49 kg

DRUGS (2)
  1. HUMIRA [Suspect]
     Indication: RHEUMATOID ARTHRITIS
     Route: 058
     Dates: start: 20080401
  2. METHOTREXATE [Concomitant]
     Indication: RHEUMATOID ARTHRITIS
     Dosage: DOSE VARIES,UP TO 25MG WEEKLY,5 TABS
     Route: 048

REACTIONS (4)
  - PNEUMONIA [None]
  - SEPSIS [None]
  - TOTAL LUNG CAPACITY DECREASED [None]
  - WEIGHT DECREASED [None]
